FAERS Safety Report 4290073-1 (Version None)
Quarter: 2004Q1

REPORT INFORMATION
  Report Type: 
  Country: None (occurrence: None)
  Receive Date: 20040206
  Receipt Date: 20040206
  Transmission Date: 20041129
  Serious: Yes (Life-Threatening, Hospitalization)
  Sender: FDA-Public Use
  Company Number: None

PATIENT
  Age: 87 Year
  Sex: Male
  Weight: 73.4827 kg

DRUGS (8)
  1. ADVAIR DISKUS 250/50 [Suspect]
     Indication: ASTHMA
     Dosage: 1 INHALA 2 TIMES/D RESPIRATORY
     Route: 055
     Dates: start: 20031121, end: 20031219
  2. ADVAIR DISKUS 250/50 [Suspect]
     Indication: CHRONIC OBSTRUCTIVE AIRWAYS DISEASE
     Dosage: 1 INHALA 2 TIMES/D RESPIRATORY
     Route: 055
     Dates: start: 20031121, end: 20031219
  3. ARICEPT [Concomitant]
  4. IC PAROXETINE HCL [Concomitant]
  5. FUROSEMIDE [Concomitant]
  6. IC METHYLPHENIDATE SA [Concomitant]
  7. ASPIRIN [Concomitant]
  8. MUTLIVITAMIN [Concomitant]

REACTIONS (5)
  - ASTHMA [None]
  - CHRONIC OBSTRUCTIVE AIRWAYS DISEASE EXACERBATED [None]
  - MEDICATION ERROR [None]
  - PHARMACEUTICAL PRODUCT COMPLAINT [None]
  - RESPIRATORY DISTRESS [None]
